FAERS Safety Report 12967582 (Version 1)
Quarter: 2016Q4

REPORT INFORMATION
  Report Type: Spontaneous
  Country: US (occurrence: US)
  Receive Date: 20161123
  Receipt Date: 20161123
  Transmission Date: 20170207
  Serious: Yes (Other)
  Sender: FDA-Public Use
  Company Number: PHHY2016US156713

PATIENT
  Age: 23 Year
  Sex: Male

DRUGS (2)
  1. TRAMETINIB [Suspect]
     Active Substance: TRAMETINIB
     Indication: ACUTE MYELOID LEUKAEMIA
     Route: 065
  2. TRAMETINIB [Suspect]
     Active Substance: TRAMETINIB
     Indication: MEDIASTINUM NEOPLASM

REACTIONS (5)
  - Pneumonia [Unknown]
  - Staphylococcal bacteraemia [Unknown]
  - Pulmonary mass [Unknown]
  - Product use issue [Unknown]
  - Mediastinum neoplasm [Unknown]
